FAERS Safety Report 13491101 (Version 1)
Quarter: 2017Q2

REPORT INFORMATION
  Report Type: Spontaneous
  Country: US (occurrence: US)
  Receive Date: 20170427
  Receipt Date: 20170427
  Transmission Date: 20170830
  Serious: Yes (Hospitalization)
  Sender: FDA-Public Use
  Company Number: US-VIFOR (INTERNATIONAL) INC.-VIT-2017-04440

PATIENT
  Sex: Male

DRUGS (10)
  1. DIGOXIN. [Concomitant]
     Active Substance: DIGOXIN
  2. VELTASSA [Suspect]
     Active Substance: PATIROMER
     Indication: HYPERKALAEMIA
     Route: 065
  3. ALLOPURINOL. [Concomitant]
     Active Substance: ALLOPURINOL
  4. ACETYLSALICYLIC ACID [Concomitant]
     Active Substance: ASPIRIN
  5. CALCITRIOL. [Concomitant]
     Active Substance: CALCITRIOL
  6. LASIX [Concomitant]
     Active Substance: FUROSEMIDE
  7. ENTRESTO [Concomitant]
     Active Substance: SACUBITRIL\VALSARTAN
  8. NEXIUM [Concomitant]
     Active Substance: ESOMEPRAZOLE MAGNESIUM
  9. PARACETAMOL [Concomitant]
     Active Substance: ACETAMINOPHEN
  10. LANACANE [Concomitant]
     Active Substance: BENZOCAINE

REACTIONS (1)
  - Hospitalisation [Unknown]
